FAERS Safety Report 23859519 (Version 1)
Quarter: 2024Q2

REPORT INFORMATION
  Report Type: Spontaneous
  Country: US (occurrence: US)
  Receive Date: 20240515
  Receipt Date: 20240515
  Transmission Date: 20240715
  Serious: Yes (Hospitalization, Other)
  Sender: FDA-Public Use
  Company Number: US-AMGEN-USASP2024094468

PATIENT
  Age: 50 Year
  Sex: Male

DRUGS (3)
  1. ADALIMUMAB [Suspect]
     Active Substance: ADALIMUMAB\ISOPROPYL ALCOHOL
     Indication: Rheumatoid arthritis
     Dosage: UNK
     Route: 065
  2. ACETAMINOPHEN [Concomitant]
     Active Substance: ACETAMINOPHEN
     Dosage: UNK (OCCASIONAL)
     Route: 065
  3. SARS-CoV-2 vaccine [Concomitant]
     Indication: COVID-19 immunisation
     Route: 065

REACTIONS (3)
  - Immunodeficiency [Unknown]
  - Histoplasmosis disseminated [Unknown]
  - Acute kidney injury [Unknown]
